FAERS Safety Report 6099460-2 (Version None)
Quarter: 2009Q1

REPORT INFORMATION
  Report Type: 
  Country: None (occurrence: None)
  Receive Date: 20090303
  Receipt Date: 20090217
  Transmission Date: 20090719
  Serious: Yes (Other)
  Sender: FDA-Public Use
  Company Number: VE-BAYER-200912743LA

PATIENT
  Age: 37 Year
  Sex: Female

DRUGS (1)
  1. MIRENA [Suspect]
     Indication: CONTRACEPTION
     Route: 015
     Dates: start: 20070301

REACTIONS (4)
  - AMENORRHOEA [None]
  - CARBOHYDRATE ANTIGEN 125 INCREASED [None]
  - GENITAL HAEMORRHAGE [None]
  - UTERINE LEIOMYOMA [None]
